FAERS Safety Report 10393238 (Version 1)
Quarter: 2014Q3

REPORT INFORMATION
  Report Type: Spontaneous
  Country: DE (occurrence: DE)
  Receive Date: 20140819
  Receipt Date: 20140819
  Transmission Date: 20150326
  Serious: Yes (Hospitalization)
  Sender: FDA-Public Use
  Company Number: DE-B.I. PHARMACEUTICALS,INC./RIDGEFIELD-2014-BI-38196DE

PATIENT
  Age: 82 Year
  Sex: Male

DRUGS (2)
  1. MARCUMAR [Concomitant]
     Active Substance: PHENPROCOUMON
     Route: 065
  2. PRADAXA [Suspect]
     Active Substance: DABIGATRAN ETEXILATE MESYLATE
     Indication: PRODUCT USED FOR UNKNOWN INDICATION
     Dosage: 200 MG
     Route: 065
     Dates: start: 20131204

REACTIONS (3)
  - Haemorrhage [Unknown]
  - Faeces discoloured [Unknown]
  - Haemorrhage [Unknown]

NARRATIVE: CASE EVENT DATE: 20140731
